FAERS Safety Report 10150104 (Version 1)
Quarter: 2014Q2

REPORT INFORMATION
  Report Type: Spontaneous
  Country: CA (occurrence: CA)
  Receive Date: 20140502
  Receipt Date: 20140502
  Transmission Date: 20141212
  Serious: Yes (Hospitalization)
  Sender: FDA-Public Use
  Company Number: CA-GLAXOSMITHKLINE-A1007546A

PATIENT
  Age: 71 Year
  Sex: Male
  Weight: 64.4 kg

DRUGS (25)
  1. ADVAIR [Suspect]
     Indication: CHRONIC OBSTRUCTIVE PULMONARY DISEASE
     Dosage: 1PUFF TWICE PER DAY
     Route: 055
     Dates: start: 2002, end: 201212
  2. CEFOXITIN [Suspect]
     Route: 065
     Dates: start: 20121227, end: 20130104
  3. SPIRIVA [Concomitant]
     Dosage: 1PUFF PER DAY
  4. SALBUTAMOL [Concomitant]
     Dosage: 2PUFF FOUR TIMES PER DAY
  5. AMLODIPINE [Concomitant]
     Dosage: 5MG PER DAY
  6. ALFUZOSIN [Concomitant]
  7. CARBOCAL [Concomitant]
  8. ASAPHEN [Concomitant]
     Dosage: 30MG PER DAY
  9. RAMIPRIL [Concomitant]
     Dosage: 10MG PER DAY
  10. AVODART [Concomitant]
  11. HYDROCHLOROTHIAZIDE [Concomitant]
  12. ALENDRONATE [Concomitant]
     Dosage: 70MG WEEKLY
  13. MULTIVITAMIN [Concomitant]
  14. AZITHROMYCIN [Concomitant]
     Dosage: 2TAB THREE TIMES PER WEEK
  15. LACTULOSE [Concomitant]
  16. PREDNISONE [Concomitant]
     Dosage: 2TAB PER DAY
  17. DOCUSATE [Concomitant]
  18. VESICARE [Concomitant]
     Dosage: 5MG PER DAY
  19. RAPAFLO [Concomitant]
     Dosage: 8MG PER DAY
  20. NOVO-GESIC [Concomitant]
     Dosage: 500MG SEE DOSAGE TEXT
  21. UNKNOWN MEDICATION [Concomitant]
     Dosage: 500MG TWICE PER DAY
  22. ONBREZ [Concomitant]
     Dosage: 1PUFF PER DAY
  23. UNKNOWN MEDICATION [Concomitant]
     Dosage: 1NEB FOUR TIMES PER DAY
  24. CIPROFLOXACIN [Concomitant]
     Dosage: 500MG TWICE PER DAY
  25. UNKNOWN MEDICATION [Concomitant]

REACTIONS (5)
  - Pneumonia [Unknown]
  - Oral candidiasis [Unknown]
  - Cheilitis [Unknown]
  - Dry mouth [Unknown]
  - Lip oedema [Unknown]
